FAERS Safety Report 4742947-2 (Version None)
Quarter: 2005Q3

REPORT INFORMATION
  Report Type: 
  Country: None (occurrence: None)
  Receive Date: 20050804
  Receipt Date: 20050425
  Transmission Date: 20060218
  Serious: No
  Sender: FDA-Public Use
  Company Number: FACT0500381

PATIENT
  Age: 84 Year
  Sex: Female
  Weight: 67.1 kg

DRUGS (5)
  1. FACTIVE [Suspect]
     Indication: RESPIRATORY TRACT INFECTION BACTERIAL
     Dosage: 320 MG, QD, ORAL
     Route: 048
     Dates: start: 20050407, end: 20050408
  2. LOTENSIN [Concomitant]
  3. PRAVACHOL (PRAVASTIN SODIUM) [Concomitant]
  4. TIMOLOL MALEATE [Concomitant]
  5. XALATAN [Concomitant]

REACTIONS (1)
  - RASH MACULO-PAPULAR [None]
